FAERS Safety Report 16057594 (Version 1)
Quarter: 2019Q1

REPORT INFORMATION
  Report Type: Spontaneous
  Country: US (occurrence: US)
  Receive Date: 20190311
  Receipt Date: 20190311
  Transmission Date: 20190418
  Serious: No
  Sender: FDA-Public Use
  Company Number: US-SA-2019SA063023

PATIENT
  Age: 60 Year
  Sex: Male

DRUGS (2)
  1. PRALUENT [Suspect]
     Active Substance: ALIROCUMAB
     Dosage: UNK
     Dates: start: 201808
  2. REPATHA [Concomitant]
     Active Substance: EVOLOCUMAB

REACTIONS (2)
  - Myalgia [Unknown]
  - Muscle spasms [Unknown]

NARRATIVE: CASE EVENT DATE: 2019
